FAERS Safety Report 5333938-1 (Version None)
Quarter: 2007Q2

REPORT INFORMATION
  Report Type: 
  Country: None (occurrence: None)
  Receive Date: 20070524
  Receipt Date: 20070516
  Transmission Date: 20071010
  Serious: Yes (Other)
  Sender: FDA-Public Use
  Company Number: US-SANOFI-SYNTHELABO-A03200703150

PATIENT
  Sex: Male

DRUGS (1)
  1. PLAVIX [Suspect]
     Indication: ACUTE MYOCARDIAL INFARCTION
     Dosage: UNK
     Route: 048
     Dates: start: 20020101

REACTIONS (1)
  - BONE MARROW FAILURE [None]
